FAERS Safety Report 5233001-4 (Version None)
Quarter: 2007Q1

REPORT INFORMATION
  Report Type: 
  Country: None (occurrence: None)
  Receive Date: 20061204
  Receipt Date: 20060912
  Transmission Date: 20070707
  Serious: No
  Sender: FDA-Public Use
  Company Number: 2006-BP-08831BP

PATIENT
  Age: 26 Year
  Sex: Female

DRUGS (2)
  1. SPIRIVA [Suspect]
     Indication: OBSTRUCTIVE AIRWAYS DISORDER
     Dosage: 18 MCG (18 MCG,ONE PUFF DAILY)
     Dates: start: 20060719, end: 20060723
  2. ALBUTEROL INHALER (SALBUTAMOL) [Concomitant]

REACTIONS (4)
  - CHEST PAIN [None]
  - PRURITUS [None]
  - RASH [None]
  - RASH PAPULAR [None]
